FAERS Safety Report 5536598-X (Version None)
Quarter: 2007Q4

REPORT INFORMATION
  Report Type: 
  Country: None (occurrence: None)
  Receive Date: 20071206
  Receipt Date: 20070911
  Transmission Date: 20080405
  Serious: Yes (Other)
  Sender: FDA-Public Use
  Company Number: US-AMGEN-KDL242993

PATIENT
  Sex: Male

DRUGS (1)
  1. ENBREL [Suspect]
     Indication: PSORIATIC ARTHROPATHY
     Route: 058
     Dates: start: 20040920

REACTIONS (4)
  - LACERATION [None]
  - MUSCULOSKELETAL STIFFNESS [None]
  - ROTATOR CUFF REPAIR [None]
  - STAPHYLOCOCCAL INFECTION [None]
